FAERS Safety Report 13395912 (Version 1)
Quarter: 2017Q2

REPORT INFORMATION
  Report Type: Spontaneous
  Country: US (occurrence: US)
  Receive Date: 20170403
  Receipt Date: 20170403
  Transmission Date: 20170830
  Serious: No
  Sender: FDA-Public Use
  Company Number: None

PATIENT
  Age: 71 Year
  Sex: Female

DRUGS (2)
  1. TYKERB [Suspect]
     Active Substance: LAPATINIB DITOSYLATE
     Indication: METASTASES TO LUNG
  2. TYKERB [Suspect]
     Active Substance: LAPATINIB DITOSYLATE
     Indication: METASTATIC NEOPLASM

REACTIONS (2)
  - Thrombosis [None]
  - Pulmonary thrombosis [None]

NARRATIVE: CASE EVENT DATE: 20170403
